FAERS Safety Report 8910124 (Version 1)
Quarter: 2012Q4

REPORT INFORMATION
  Report Type: 
  Country: PR (occurrence: PR)
  Receive Date: 20121115
  Receipt Date: 20121115
  Transmission Date: 20130627
  Serious: Yes (Hospitalization)
  Sender: FDA-Public Use
  Company Number: US-ACTELION-A-US2012-64440

PATIENT
  Age: 58 Year
  Sex: Female

DRUGS (1)
  1. TRACLEER [Suspect]
     Indication: PULMONARY ARTERIAL HYPERTENSION
     Dosage: UNK
     Route: 048

REACTIONS (10)
  - Hallucination [Unknown]
  - Oedema peripheral [Unknown]
  - Dizziness [Unknown]
  - Joint swelling [Unknown]
  - Vision blurred [Unknown]
  - Insomnia [Unknown]
  - Nasal congestion [Unknown]
  - Oedema peripheral [Unknown]
  - Headache [Unknown]
  - Dyspnoea [Unknown]
